FAERS Safety Report 8541783 (Version 2)
Quarter: 2012Q4

REPORT INFORMATION
  Report Type: Report from Study
  Country: US (occurrence: US)
  Receive Date: 20120502
  Receipt Date: 20121226
  Transmission Date: 20130627
  Serious: Yes (Hospitalization, Other)
  Sender: FDA-Public Use
  Company Number: US-ABBOTT-12P-163-0930129-00

PATIENT
  Sex: Female
  Weight: 122.58 kg

DRUGS (13)
  1. HUMIRA 40 MG/0.8 ML PEN [Suspect]
     Indication: CROHN^S DISEASE
     Dates: start: 200905, end: 201201
  2. HUMIRA 40 MG/0.8 ML PEN [Suspect]
     Dosage: loading dose
     Dates: start: 20121215
  3. PENTASA [Concomitant]
     Indication: CROHN^S DISEASE
  4. MULTIPLE VITAMIN [Concomitant]
     Indication: PRODUCT USED FOR UNKNOWN INDICATION
  5. DEPAKOTE [Concomitant]
     Indication: BIPOLAR DISORDER
  6. PROMETHAZINE [Concomitant]
     Indication: NAUSEA
  7. CYMBALTA [Concomitant]
     Indication: DEPRESSION
  8. VITAMIN B 12 [Concomitant]
     Indication: PRODUCT USED FOR UNKNOWN INDICATION
  9. CALCIUM + VIT D [Concomitant]
     Indication: PRODUCT USED FOR UNKNOWN INDICATION
  10. FOLIC ACID [Concomitant]
     Indication: PRODUCT USED FOR UNKNOWN INDICATION
  11. AMBIEN [Concomitant]
     Indication: INSOMNIA
  12. GEODON [Concomitant]
     Indication: BIPOLAR DISORDER
  13. OMEPRAZOLE [Concomitant]
     Indication: GASTROOESOPHAGEAL REFLUX DISEASE

REACTIONS (8)
  - Erythema [Recovering/Resolving]
  - Skin infection [Recovering/Resolving]
  - Abscess rupture [Recovered/Resolved]
  - Injection site pain [Recovered/Resolved]
  - Mass [Recovered/Resolved]
  - Cholecystectomy [Recovered/Resolved]
  - Gastric infection [Recovered/Resolved]
  - Hernia [Recovered/Resolved]
